FAERS Safety Report 7123530-0 (Version None)
Quarter: 2010Q4

REPORT INFORMATION
  Report Type: 
  Country: None (occurrence: None)
  Receive Date: 20101125
  Receipt Date: 20101116
  Transmission Date: 20110411
  Serious: Yes (Hospitalization)
  Sender: FDA-Public Use
  Company Number: FR-PFIZER INC-2010156844

PATIENT
  Age: 94 Year
  Sex: Female

DRUGS (5)
  1. EUPANTOL [Suspect]
     Dosage: 20 MG, 1X/DAY
     Route: 048
     Dates: end: 20100727
  2. ENALAPRIL MALEATE [Suspect]
     Dosage: 20 MG, UNK
     Route: 048
     Dates: end: 20100727
  3. LASIX [Suspect]
     Dosage: 40 MG, 1X/DAY
     Route: 048
     Dates: end: 20100727
  4. ACETAMINOPHEN W/ PROPOXYPHENE HCL [Suspect]
     Dosage: 2 DF, 1X/DAY
     Route: 048
     Dates: end: 20100727
  5. BI-PROFENID [Suspect]
     Dosage: 150 MG, 1X/DAY
     Route: 048
     Dates: end: 20100727

REACTIONS (2)
  - HYPONATRAEMIA [None]
  - INAPPROPRIATE ANTIDIURETIC HORMONE SECRETION [None]
